FAERS Safety Report 9885151 (Version 1)
Quarter: 2014Q1

REPORT INFORMATION
  Report Type: Spontaneous
  Country: GB (occurrence: GB)
  Receive Date: 20140210
  Receipt Date: 20140210
  Transmission Date: 20141002
  Serious: Yes (Death, Hospitalization, Other)
  Sender: FDA-Public Use
  Company Number: GB-TEVA-459753ISR

PATIENT
  Age: 50 Year
  Sex: Male

DRUGS (4)
  1. VENLAFAXINE [Suspect]
  2. CLOZARIL [Suspect]
     Indication: SCHIZOPHRENIA
     Dates: start: 20031107
  3. CLOZARIL [Suspect]
     Dosage: 800 MILLIGRAM DAILY;
  4. CLOZARIL [Suspect]
     Dosage: 700 MILLIGRAM DAILY;

REACTIONS (15)
  - Cardiac arrest [Fatal]
  - Arrhythmia [Fatal]
  - Cardiotoxicity [Fatal]
  - Toxicity to various agents [Unknown]
  - Chest discomfort [Unknown]
  - Multi-organ failure [Fatal]
  - Antipsychotic drug level above therapeutic [Fatal]
  - Brain injury [Unknown]
  - Circulatory collapse [Fatal]
  - Pulseless electrical activity [Fatal]
  - Electrocardiogram QT prolonged [Unknown]
  - Renal failure [Unknown]
  - Sinus tachycardia [Unknown]
  - Sudden cardiac death [Fatal]
  - Sudden unexplained death in epilepsy [Fatal]
